FAERS Safety Report 6671229-7 (Version None)
Quarter: 2010Q2

REPORT INFORMATION
  Report Type: 
  Country: None (occurrence: None)
  Receive Date: 20100406
  Receipt Date: 20100406
  Transmission Date: 20101027
  Serious: No
  Sender: FDA-Public Use
  Company Number: None

PATIENT
  Age: 15 Year
  Sex: Female
  Weight: 54.4316 kg

DRUGS (1)
  1. CLEAN AND CLEAR ADVANTAGE 10% JOHNSON AND JOHNSON [Suspect]
     Indication: ACNE
     Dosage: ONCE ONCE TOP
     Route: 061
     Dates: start: 20100401, end: 20100401

REACTIONS (1)
  - HYPERSENSITIVITY [None]
